FAERS Safety Report 9099434 (Version 2)
Quarter: 2014Q2

REPORT INFORMATION
  Report Type: Spontaneous
  Country: MX (occurrence: MX)
  Receive Date: 20130214
  Receipt Date: 20140607
  Transmission Date: 20141212
  Serious: Yes (Death)
  Sender: FDA-Public Use
  Company Number: PHHY2013MX014254

PATIENT
  Age: 64 Year
  Sex: Male

DRUGS (3)
  1. FORADIL [Suspect]
     Indication: CHRONIC OBSTRUCTIVE PULMONARY DISEASE
     Dosage: 12 UG
     Dates: start: 201209
  2. FORADIL [Suspect]
     Indication: PULMONARY FIBROSIS
  3. FORADIL [Suspect]
     Indication: OFF LABEL USE

REACTIONS (1)
  - Pulmonary fibrosis [Fatal]
